FAERS Safety Report 26129792 (Version 1)
Quarter: 2025Q4

REPORT INFORMATION
  Report Type: Spontaneous
  Country: CN (occurrence: CN)
  Receive Date: 20251208
  Receipt Date: 20251208
  Transmission Date: 20260117
  Serious: Yes (Life-Threatening, Hospitalization, Other)
  Sender: XELLIA PHARMACEUTICALS
  Company Number: CN-Axellia-005688

PATIENT
  Age: 63 Year
  Sex: Female

DRUGS (6)
  1. POLYMYXIN B [Suspect]
     Active Substance: POLYMYXIN B
     Indication: Acinetobacter infection
     Dosage: 750,000 IU EVERY 12 H
     Dates: start: 20250512, end: 20250523
  2. TIGECYCLINE [Concomitant]
     Active Substance: TIGECYCLINE
     Indication: Acinetobacter infection
     Dosage: 50 MG EVERY 12 H
     Dates: start: 20250512, end: 20250607
  3. VANCOMYCIN [Concomitant]
     Active Substance: VANCOMYCIN
     Indication: Acinetobacter infection
     Dosage: 1 G, Q12 H
     Dates: start: 20250429, end: 20250517
  4. ESOMEPRAZOLE [Concomitant]
     Active Substance: ESOMEPRAZOLE
     Indication: Acinetobacter infection
  5. IBUPROFEN [Concomitant]
     Active Substance: IBUPROFEN
     Indication: Acinetobacter infection
  6. VANCOMYCIN [Concomitant]
     Active Substance: VANCOMYCIN
     Indication: Acinetobacter infection
     Dosage: REDUCED TO 0.5 G Q12 H
     Dates: start: 20250429

REACTIONS (5)
  - Diaphragmatic paralysis [Recovered/Resolved]
  - Encephalopathy [Recovered/Resolved]
  - Respiratory paralysis [Recovered/Resolved]
  - Respiratory failure [Recovered/Resolved]
  - Acute kidney injury [Recovered/Resolved]

NARRATIVE: CASE EVENT DATE: 20250101
